FAERS Safety Report 17916972 (Version 1)
Quarter: 2020Q2

REPORT INFORMATION
  Report Type: Spontaneous
  Country: US (occurrence: US)
  Receive Date: 20200619
  Receipt Date: 20200619
  Transmission Date: 20200714
  Serious: Yes (Death, Hospitalization)
  Sender: FDA-Public Use
  Company Number: None

PATIENT
  Sex: Male
  Weight: 71.6 kg

DRUGS (1)
  1. NEXAVAR [Suspect]
     Active Substance: SORAFENIB
     Dates: end: 20200603

REACTIONS (9)
  - Therapy interrupted [None]
  - Abdominal pain [None]
  - Urinary tract infection [None]
  - White blood cell count increased [None]
  - Lethargy [None]
  - Melaena [None]
  - General physical health deterioration [None]
  - Haematemesis [None]
  - Sepsis [None]

NARRATIVE: CASE EVENT DATE: 20200612
